FAERS Safety Report 23518156 (Version 1)
Quarter: 2024Q1

REPORT INFORMATION
  Report Type: Spontaneous
  Country: RU (occurrence: None)
  Receive Date: 20240213
  Receipt Date: 20240213
  Transmission Date: 20240410
  Serious: Yes (Disabling, Other)
  Sender: FDA-Public Use
  Company Number: 2024A034777

PATIENT
  Age: 44 Year
  Sex: Female

DRUGS (2)
  1. TAGRISSO [Suspect]
     Active Substance: OSIMERTINIB
     Indication: Adenocarcinoma
     Dosage: 80.0MG UNKNOWN
     Route: 048
  2. MOXONIDINE [Concomitant]
     Active Substance: MOXONIDINE
     Indication: Blood pressure abnormal

REACTIONS (9)
  - Encephalopathy [Not Recovered/Not Resolved]
  - Acne [Recovered/Resolved]
  - Constipation [Unknown]
  - Diarrhoea [Recovered/Resolved]
  - Epistaxis [Not Recovered/Not Resolved]
  - Ingrowing nail [Recovered/Resolved]
  - Electrocardiogram QT prolonged [Unknown]
  - Vomiting [Not Recovered/Not Resolved]
  - Body temperature [Not Recovered/Not Resolved]

NARRATIVE: CASE EVENT DATE: 20231001
